FAERS Safety Report 12437583 (Version 3)
Quarter: 2017Q1

REPORT INFORMATION
  Report Type: Spontaneous
  Country: JP (occurrence: JP)
  Receive Date: 20160606
  Receipt Date: 20170119
  Transmission Date: 20170428
  Serious: Yes (Other)
  Sender: FDA-Public Use
  Company Number: JP-ELI_LILLY_AND_COMPANY-JP201605005085

PATIENT
  Age: 73 Year
  Sex: Male
  Weight: 66 kg

DRUGS (15)
  1. PRASUGREL HYDROCHLORIDE [Suspect]
     Active Substance: PRASUGREL HYDROCHLORIDE
     Indication: PERCUTANEOUS CORONARY INTERVENTION
     Dosage: 3.75 MG, QD
     Route: 048
     Dates: start: 20160423, end: 20160426
  2. SULBACILLIN [Concomitant]
     Active Substance: AMPICILLIN SODIUM\SULBACTAM SODIUM
     Dosage: 3 G, BID
     Route: 042
     Dates: start: 20160425, end: 20160425
  3. TANATRIL [Concomitant]
     Active Substance: IMIDAPRIL
     Dosage: 1.25 MG, QD
     Route: 065
     Dates: start: 20160423, end: 20160508
  4. BAYASPIRIN [Suspect]
     Active Substance: ASPIRIN
     Indication: PERCUTANEOUS CORONARY INTERVENTION
     Dosage: 100 MG, QD
     Route: 048
     Dates: start: 20160423
  5. BAYASPIRIN [Suspect]
     Active Substance: ASPIRIN
     Indication: ACUTE MYOCARDIAL INFARCTION
     Dosage: UNK
  6. PHYSIOLOGICAL SALINE SOLUTION [Concomitant]
     Active Substance: SODIUM CHLORIDE
     Dosage: 50 ML, BID
     Dates: start: 20160426, end: 20160502
  7. MEROPENEM. [Concomitant]
     Active Substance: MEROPENEM
     Dosage: .5 G, BID
     Route: 042
     Dates: start: 20160426, end: 20160502
  8. SPIRIVA [Concomitant]
     Active Substance: TIOTROPIUM BROMIDE MONOHYDRATE
     Dosage: 5 UG, BID
     Route: 055
     Dates: start: 20160423, end: 20160501
  9. DIART [Concomitant]
     Active Substance: AZOSEMIDE
     Dosage: 60 MG, QD
     Route: 065
     Dates: start: 20160426, end: 20160427
  10. HEPARIN [Concomitant]
     Active Substance: HEPARIN SODIUM
     Indication: PERCUTANEOUS CORONARY INTERVENTION
     Dosage: UNK UNK, UNKNOWN
     Route: 042
  11. SOLDEM 1 [Concomitant]
     Active Substance: DEXTROSE\SODIUM CHLORIDE\SODIUM LACTATE
     Dosage: 200 ML, QD
     Route: 065
     Dates: start: 20160425, end: 20160428
  12. PHYSIOLOGICAL SALINE SOLUTION [Concomitant]
     Active Substance: SODIUM CHLORIDE
     Dosage: 50 ML, BID
     Route: 042
     Dates: start: 20160425, end: 20160425
  13. LIVALO [Concomitant]
     Active Substance: PITAVASTATIN CALCIUM
     Dosage: 2 MG, QD
     Route: 065
     Dates: start: 20160424, end: 20160508
  14. PRASUGREL HYDROCHLORIDE [Suspect]
     Active Substance: PRASUGREL HYDROCHLORIDE
     Indication: ACUTE MYOCARDIAL INFARCTION
  15. DIART [Concomitant]
     Active Substance: AZOSEMIDE
     Dosage: 60 MG, QD
     Route: 065
     Dates: start: 20160425, end: 20160425

REACTIONS (2)
  - Pulmonary alveolar haemorrhage [Recovered/Resolved]
  - Lung neoplasm malignant [Unknown]

NARRATIVE: CASE EVENT DATE: 20160423
